FAERS Safety Report 19239381 (Version 1)
Quarter: 2021Q2

REPORT INFORMATION
  Report Type: Report from Study
  Country: IT (occurrence: IT)
  Receive Date: 20210510
  Receipt Date: 20210510
  Transmission Date: 20210717
  Serious: Yes (Hospitalization)
  Sender: FDA-Public Use
  Company Number: IT-TEVA-2021-IT-1908822

PATIENT
  Age: 81 Year
  Sex: Male

DRUGS (12)
  1. LEVOFLOXACIN HEMIHYDRATE [Concomitant]
     Active Substance: LEVOFLOXACIN
  2. PALEXIA [Interacting]
     Active Substance: TAPENTADOL HYDROCHLORIDE
     Dosage: 2 DF
     Dates: start: 20210302, end: 20210303
  3. ZYLORIC 300 MG COMPRESSE [Concomitant]
     Active Substance: ALLOPURINOL
  4. TORVAST 20 MG COMPRESSE MASTICABILI [Concomitant]
  5. DELTACORTENE 25 MG COMPRESSE [Concomitant]
     Active Substance: PREDNISONE
  6. TAREG [Concomitant]
     Active Substance: VALSARTAN
  7. FLUCONAZOLE. [Concomitant]
     Active Substance: FLUCONAZOLE
  8. LYRICA [Interacting]
     Active Substance: PREGABALIN
     Dosage: 1 DF
     Route: 048
     Dates: start: 20210219, end: 20210304
  9. PARACETAMOL [Concomitant]
     Active Substance: ACETAMINOPHEN
  10. ZOLPIDEM RATIOPHARM 10 MG COMPRESSE RIVESTITE CON FILM [Suspect]
     Active Substance: ZOLPIDEM TARTRATE
     Indication: INSOMNIA
     Dosage: 1 DF
     Route: 048
  11. PIPERACILLINA SODICA/TAZOBACTAM SODICO [Concomitant]
     Active Substance: PIPERACILLIN SODIUM\TAZOBACTAM SODIUM
  12. PANTOPRAZOLE SODIUM SESQUIHYDRATE [Concomitant]
     Active Substance: PANTOPRAZOLE SODIUM

REACTIONS (2)
  - Petit mal epilepsy [Recovering/Resolving]
  - Drug interaction [Unknown]

NARRATIVE: CASE EVENT DATE: 20210302
